FAERS Safety Report 6333402-7 (Version None)
Quarter: 2009Q3

REPORT INFORMATION
  Report Type: 
  Country: None (occurrence: None)
  Receive Date: 20090828
  Receipt Date: 20090819
  Transmission Date: 20100115
  Serious: Yes (Hospitalization, Other)
  Sender: FDA-Public Use
  Company Number: AT-CELGENEUS-009-50794-09081525

PATIENT
  Sex: Female
  Weight: 75 kg

DRUGS (8)
  1. VIDAZA [Suspect]
     Indication: ACUTE MYELOID LEUKAEMIA
     Route: 058
     Dates: start: 20090428
  2. LOVENOX [Concomitant]
     Indication: THROMBOSIS PROPHYLAXIS
     Route: 058
  3. VFEND [Concomitant]
     Route: 065
     Dates: start: 20090619
  4. BISOPROLOL FUMARATE [Concomitant]
     Route: 065
  5. NULYTELY [Concomitant]
     Route: 048
  6. GUTTALAX [Concomitant]
     Route: 065
  7. LASIX [Concomitant]
     Indication: DRUG USE FOR UNKNOWN INDICATION
     Route: 048
  8. RATIOGRASTIM [Concomitant]
     Indication: NEUTROPENIA
     Route: 065

REACTIONS (3)
  - BRONCHOPULMONARY ASPERGILLOSIS [None]
  - JUGULAR VEIN THROMBOSIS [None]
  - SUBCLAVIAN VEIN THROMBOSIS [None]
